FAERS Safety Report 6120131-8 (Version None)
Quarter: 2009Q1

REPORT INFORMATION
  Report Type: 
  Country: None (occurrence: None)
  Receive Date: 20090316
  Receipt Date: 20090306
  Transmission Date: 20090719
  Serious: Yes (Life-Threatening)
  Sender: FDA-Public Use
  Company Number: AU-MERCK-0902AUS00039

PATIENT
  Age: 50 Year
  Sex: Male
  Weight: 109 kg

DRUGS (1)
  1. JANUVIA [Suspect]
     Indication: TYPE 2 DIABETES MELLITUS
     Route: 048
     Dates: start: 20081015, end: 20081112

REACTIONS (1)
  - ACUTE MYOCARDIAL INFARCTION [None]
